FAERS Safety Report 7706800-4 (Version None)
Quarter: 2011Q3

REPORT INFORMATION
  Report Type: 
  Country: None (occurrence: None)
  Receive Date: 20110824
  Receipt Date: 20110817
  Transmission Date: 20111222
  Serious: Yes (Disabling)
  Sender: FDA-Public Use
  Company Number: US-MERCK-1105USA04068

PATIENT
  Age: 69 Year
  Sex: Female
  Weight: 76 kg

DRUGS (11)
  1. SINEMET [Suspect]
     Indication: POSTPARTUM HYPOPITUITARISM
     Route: 048
     Dates: start: 20110517, end: 20110602
  2. CARBIDOPA AND LEVODOPA [Suspect]
     Indication: POSTPARTUM HYPOPITUITARISM
     Route: 048
     Dates: start: 19780101, end: 20110501
  3. MEVACOR [Concomitant]
     Route: 048
  4. INSULIN [Concomitant]
     Route: 065
  5. TIROSINT [Concomitant]
     Indication: DIABETES MELLITUS
     Route: 048
     Dates: start: 20100101
  6. PREDNISONE [Concomitant]
     Indication: POSTPARTUM HYPOPITUITARISM
     Route: 048
     Dates: start: 19780101
  7. TIROSINT [Concomitant]
     Indication: POSTPARTUM HYPOPITUITARISM
     Route: 048
     Dates: start: 20100101
  8. ACTOPLUS MET [Concomitant]
     Indication: DIABETES MELLITUS
     Route: 048
     Dates: start: 20080101
  9. HUMALOG [Concomitant]
     Indication: DIABETES MELLITUS
     Route: 051
     Dates: start: 20080101
  10. SINEMET [Suspect]
     Route: 048
     Dates: start: 20110617, end: 20110620
  11. LEVEMIR [Concomitant]
     Indication: DIABETES MELLITUS
     Route: 065
     Dates: start: 20080101

REACTIONS (12)
  - CHEST PAIN [None]
  - CONFUSIONAL STATE [None]
  - MIGRAINE [None]
  - DRUG INEFFECTIVE [None]
  - RASH [None]
  - WRONG TECHNIQUE IN DRUG USAGE PROCESS [None]
  - PAIN [None]
  - GLOSSODYNIA [None]
  - OVERDOSE [None]
  - FATIGUE [None]
  - TREMOR [None]
  - VISION BLURRED [None]
